FAERS Safety Report 4661790-6 (Version None)
Quarter: 2005Q2

REPORT INFORMATION
  Report Type: 
  Country: None (occurrence: None)
  Receive Date: 20050513
  Receipt Date: 20050503
  Transmission Date: 20051028
  Serious: Yes (Other)
  Sender: FDA-Public Use
  Company Number: 2005GB00856

PATIENT
  Age: 62 Year
  Sex: Female
  Weight: 72 kg

DRUGS (8)
  1. PROPOFOL [Suspect]
     Route: 042
  2. DULOXETINE HYDROCHLORIDE [Suspect]
     Indication: URINARY INCONTINENCE
     Route: 048
     Dates: start: 20041101
  3. ONDANSETRON [Interacting]
     Route: 065
  4. FENTANYL [Interacting]
     Route: 065
  5. SUXAMETHONIUM [Interacting]
     Route: 065
  6. ATRACURIUM [Interacting]
     Route: 065
  7. DESFLURANE [Interacting]
     Route: 065
  8. CEFUROXIME [Interacting]
     Route: 065

REACTIONS (3)
  - ANAPHYLACTIC REACTION [None]
  - DRUG INTERACTION [None]
  - PROCEDURAL HYPOTENSION [None]
